FAERS Safety Report 8396078-3 (Version None)
Quarter: 2012Q2

REPORT INFORMATION
  Report Type: 
  Country: None (occurrence: None)
  Receive Date: 20120530
  Receipt Date: 20120522
  Transmission Date: 20120825
  Serious: Yes (Other)
  Sender: FDA-Public Use
  Company Number: JP-ROCHE-1072857

PATIENT
  Sex: Male

DRUGS (3)
  1. VIGAMOX [Concomitant]
     Dates: start: 20101001, end: 20101001
  2. RANIBIZUMAB [Suspect]
     Indication: AGE-RELATED MACULAR DEGENERATION
     Route: 050
     Dates: start: 20101018
  3. VISUDYNE [Concomitant]
     Dates: start: 20060614, end: 20060614

REACTIONS (1)
  - URTICARIA [None]
